FAERS Safety Report 19930225 (Version 3)
Quarter: 2021Q4

REPORT INFORMATION
  Report Type: Spontaneous
  Country: NL (occurrence: NL)
  Receive Date: 20211008
  Receipt Date: 20211014
  Transmission Date: 20220304
  Serious: Yes (Hospitalization, Other)
  Sender: FDA-Public Use
  Company Number: NL-UCBSA-2021036910

PATIENT
  Age: 60 Year
  Sex: Female

DRUGS (1)
  1. EVENITY [Suspect]
     Active Substance: ROMOSOZUMAB-AQQG
     Indication: Osteoporosis
     Dosage: 210 MILLIGRAM, QMO
     Route: 065
     Dates: start: 20210628, end: 2021

REACTIONS (9)
  - Pyrexia [Not Recovered/Not Resolved]
  - Palpitations [Not Recovered/Not Resolved]
  - Heart rate increased [Not Recovered/Not Resolved]
  - Tremor [Not Recovered/Not Resolved]
  - Gingival disorder [Not Recovered/Not Resolved]
  - Injection site induration [Not Recovered/Not Resolved]
  - Incorrect dose administered [Unknown]
  - Pain in extremity [Unknown]
  - Injection site reaction [Unknown]

NARRATIVE: CASE EVENT DATE: 20210727
